FAERS Safety Report 7971338-6 (Version None)
Quarter: 2011Q4

REPORT INFORMATION
  Report Type: 
  Country: None (occurrence: None)
  Receive Date: 20111212
  Receipt Date: 20111206
  Transmission Date: 20120403
  Serious: Yes (Other)
  Sender: FDA-Public Use
  Company Number: CA-PFIZER INC-2010064145

PATIENT
  Age: 67 Year
  Sex: Male

DRUGS (2)
  1. ROBAXACET [Suspect]
     Indication: INGUINAL HERNIA
     Dosage: UNK, EVERY 3 HOURS OR 6 HOURS AS PRESCRIBED
     Route: 048
     Dates: start: 20100101, end: 20100101
  2. CELEBREX [Suspect]
     Indication: PAIN
     Dosage: 200 MG, UNK
     Route: 048
     Dates: start: 20100101, end: 20100101

REACTIONS (2)
  - HERNIA [None]
  - ABASIA [None]
